FAERS Safety Report 16924787 (Version 1)
Quarter: 2019Q4

REPORT INFORMATION
  Report Type: Spontaneous
  Country: US (occurrence: US)
  Receive Date: 20191015
  Receipt Date: 20191015
  Transmission Date: 20200122
  Serious: Yes (Disabling)
  Sender: FDA-Public Use
  Company Number: None

PATIENT
  Age: 71 Year
  Sex: Female
  Weight: 99 kg

DRUGS (9)
  1. PROCRIT [Concomitant]
     Active Substance: ERYTHROPOIETIN
  2. VIT D [Concomitant]
     Active Substance: VITAMIN D NOS
  3. TRESIBA [Suspect]
     Active Substance: INSULIN DEGLUDEC
     Indication: TYPE 2 DIABETES MELLITUS
     Dosage: ?          OTHER STRENGTH:60 UNITS A DAY;QUANTITY:60 INJECTION(S);?
     Route: 030
  4. NOVOLOG [Concomitant]
     Active Substance: INSULIN ASPART
  5. IRON SUPPL [Concomitant]
  6. METOPROLOL. [Concomitant]
     Active Substance: METOPROLOL
  7. TRAJENTA [Concomitant]
     Active Substance: LINAGLIPTIN
  8. LIPITOR [Concomitant]
     Active Substance: ATORVASTATIN CALCIUM
  9. AMLODOPINE [Concomitant]
     Active Substance: AMLODIPINE BESYLATE

REACTIONS (6)
  - Pruritus [None]
  - Haemorrhage [None]
  - Scratch [None]
  - Scab [None]
  - Contusion [None]
  - Rash [None]

NARRATIVE: CASE EVENT DATE: 20171001
